FAERS Safety Report 11611063 (Version 3)
Quarter: 2015Q4

REPORT INFORMATION
  Report Type: Spontaneous
  Country: FR (occurrence: FR)
  Receive Date: 20151008
  Receipt Date: 20151123
  Transmission Date: 20160304
  Serious: Yes (Other)
  Sender: FDA-Public Use
  Company Number: FR-ROCHE-1643238

PATIENT
  Age: 76 Year
  Sex: Female

DRUGS (2)
  1. XOLAIR [Suspect]
     Active Substance: OMALIZUMAB
     Indication: ASTHMA
     Route: 065
     Dates: start: 201410
  2. APRANAX [Concomitant]
     Active Substance: NAPROXEN
     Route: 065

REACTIONS (1)
  - Granuloma annulare [Recovering/Resolving]

NARRATIVE: CASE EVENT DATE: 201507
